FAERS Safety Report 23722087 (Version 1)
Quarter: 2024Q2

REPORT INFORMATION
  Report Type: Spontaneous
  Country: US (occurrence: None)
  Receive Date: 20240408
  Receipt Date: 20240408
  Transmission Date: 20240715
  Serious: No
  Sender: FDA-Public Use
  Company Number: None

PATIENT
  Age: 56 Year
  Sex: Male

DRUGS (2)
  1. ENTYVIO [Suspect]
     Active Substance: VEDOLIZUMAB
     Indication: Crohn^s disease
     Dosage: OTHER FREQUENCY : WEEKLY 0,2,6;?
  2. ENTYVIO [Suspect]
     Active Substance: VEDOLIZUMAB
     Dosage: OTHER FREQUENCY : Q82;?

REACTIONS (2)
  - Abdominal distension [None]
  - Condition aggravated [None]
